FAERS Safety Report 9460545 (Version 1)
Quarter: 2013Q3

REPORT INFORMATION
  Report Type: Spontaneous
  Country: US (occurrence: US)
  Receive Date: 20130815
  Receipt Date: 20130815
  Transmission Date: 20140515
  Serious: Yes (Hospitalization)
  Sender: FDA-Public Use
  Company Number: US-ABBOTT-13P-163-1131554-00

PATIENT
  Age: 33 Year
  Sex: Male
  Weight: 81.72 kg

DRUGS (4)
  1. HUMIRA [Suspect]
     Indication: RHEUMATOID ARTHRITIS
     Dates: start: 200601, end: 2011
  2. HUMIRA [Suspect]
     Dates: start: 2011, end: 201301
  3. HUMIRA [Suspect]
     Dates: start: 201305, end: 201307
  4. ADVIL [Concomitant]
     Indication: PAIN

REACTIONS (1)
  - Osteoarthritis [Unknown]
